FAERS Safety Report 8492699-8 (Version None)
Quarter: 2012Q3

REPORT INFORMATION
  Report Type: 
  Country: None (occurrence: None)
  Receive Date: 20120706
  Receipt Date: 20120629
  Transmission Date: 20120928
  Serious: Yes (Death, Disabling)
  Sender: FDA-Public Use
  Company Number: JP-PFIZER INC-2012154090

PATIENT
  Age: 66 Year
  Sex: Male
  Weight: 61.9 kg

DRUGS (10)
  1. POLARAMINE [Concomitant]
     Indication: PROPHYLAXIS
     Dosage: 5 MG, 1X/DAY
     Route: 042
  2. FAMOTIDINE [Concomitant]
     Dosage: 10 MG, 2X/DAY
     Route: 048
     Dates: end: 20120216
  3. LEVOTHYROXINE SODIUM [Concomitant]
     Dosage: 50 UG, 1X/DAY
     Route: 048
     Dates: end: 20120216
  4. TEMSIROLIMUS [Suspect]
     Indication: RENAL CELL CARCINOMA
     Dosage: 25 MG, WEEKLY
     Route: 042
     Dates: start: 20120106, end: 20120113
  5. ETODOLAC [Concomitant]
     Dosage: 200 MG, 2X/DAY
     Route: 048
     Dates: end: 20120116
  6. MAGNESIUM OXIDE [Concomitant]
     Dosage: 0.33 G, 3X/DAY
     Route: 048
     Dates: start: 20120106, end: 20120216
  7. ACETAMINOPHEN [Concomitant]
     Dosage: 400 MG, 2X/DAY
     Route: 048
     Dates: end: 20120216
  8. OXYCONTIN [Concomitant]
     Dosage: 5 MG, 1X/DAY
     Route: 048
     Dates: start: 20120106, end: 20120107
  9. PROCHLORPERAZINE [Concomitant]
     Dosage: 5 MG, 3X/DAY
     Route: 048
     Dates: start: 20120106, end: 20120216
  10. OXYCONTIN [Concomitant]
     Dosage: 20 MG, 2X/DAY
     Route: 048
     Dates: end: 20120216

REACTIONS (3)
  - RENAL CELL CARCINOMA [None]
  - RENAL FAILURE ACUTE [None]
  - DISEASE PROGRESSION [None]
